FAERS Safety Report 10280118 (Version 3)
Quarter: 2014Q1

REPORT INFORMATION
  Report Type: Spontaneous
  Country: US (occurrence: None)
  Receive Date: 20120703
  Receipt Date: 20130107
  Transmission Date: 20141002
  Serious: No
  Sender: FDA-Public Use
  Company Number: PHEH2011US07690

PATIENT
  Age: 28 Year
  Sex: Female
  Weight: 72.6 kg

DRUGS (1)
  1. GILENYA (FTY) CAPSULE, 0.5MG [Suspect]
     Indication: RELAPSING-REMITTING MULTIPLE SCLEROSIS
     Route: 048
     Dates: start: 20111020

REACTIONS (5)
  - Headache [None]
  - Heart rate decreased [None]
  - Pain in extremity [None]
  - Fatigue [None]
  - Inappropriate schedule of drug administration [None]
